FAERS Safety Report 8277122-0 (Version None)
Quarter: 2012Q2

REPORT INFORMATION
  Report Type: 
  Country: None (occurrence: None)
  Receive Date: 20120412
  Receipt Date: 20120403
  Transmission Date: 20120825
  Serious: Yes (Hospitalization)
  Sender: FDA-Public Use
  Company Number: ZA-ASTRAZENECA-2012SE22609

PATIENT
  Sex: Male

DRUGS (2)
  1. GRANDPA POWDERS [Suspect]
     Dosage: FREQUENTLY
     Route: 048
  2. NEXIUM [Suspect]
     Route: 048

REACTIONS (1)
  - PERFORATED ULCER [None]
